FAERS Safety Report 5311901-4 (Version None)
Quarter: 2007Q2

REPORT INFORMATION
  Report Type: 
  Country: None (occurrence: None)
  Receive Date: 20070426
  Receipt Date: 20070426
  Transmission Date: 20071010
  Serious: Yes (Other)
  Sender: FDA-Public Use
  Company Number: None

PATIENT
  Age: 44 Year
  Sex: Male
  Weight: 90.7194 kg

DRUGS (2)
  1. CYMBALTA [Suspect]
     Indication: DEPRESSION
     Dosage: 120MG DAY PO
     Route: 048
     Dates: start: 20060901, end: 20070425
  2. CYMBALTA [Suspect]
     Indication: GENERALISED ANXIETY DISORDER
     Dosage: 120MG DAY PO
     Route: 048
     Dates: start: 20060901, end: 20070425

REACTIONS (35)
  - AMNESIA [None]
  - APATHY [None]
  - ARTHRALGIA [None]
  - ASTHENIA [None]
  - BACK PAIN [None]
  - BONE PAIN [None]
  - CHEST PAIN [None]
  - CHILLS [None]
  - DEPRESSION [None]
  - DIARRHOEA [None]
  - DIZZINESS [None]
  - DRUG DEPENDENCE [None]
  - DRUG INEFFECTIVE [None]
  - DRUG WITHDRAWAL SYNDROME [None]
  - DYSSTASIA [None]
  - EYE MOVEMENT DISORDER [None]
  - FATIGUE [None]
  - GAIT DISTURBANCE [None]
  - HEADACHE [None]
  - HYPERHIDROSIS [None]
  - INCONTINENCE [None]
  - IRRITABILITY [None]
  - LIBIDO DECREASED [None]
  - MIGRAINE [None]
  - MOOD ALTERED [None]
  - NAUSEA [None]
  - NIGHTMARE [None]
  - PAIN IN EXTREMITY [None]
  - PARAESTHESIA [None]
  - PHARMACEUTICAL PRODUCT COMPLAINT [None]
  - PHOTOPHOBIA [None]
  - SLUGGISHNESS [None]
  - SOMNOLENCE [None]
  - TREMOR [None]
  - VISION BLURRED [None]
